FAERS Safety Report 6354686-5 (Version None)
Quarter: 2009Q3

REPORT INFORMATION
  Report Type: 
  Country: None (occurrence: None)
  Receive Date: 20090914
  Receipt Date: 20090902
  Transmission Date: 20100115
  Serious: Yes (Other)
  Sender: FDA-Public Use
  Company Number: BE-ELI_LILLY_AND_COMPANY-BE200908004949

PATIENT
  Sex: Male
  Weight: 70 kg

DRUGS (5)
  1. BYETTA [Suspect]
     Indication: TYPE 2 DIABETES MELLITUS
     Dosage: 5 UG, DAILY (1/D)
     Route: 058
     Dates: start: 20080601, end: 20090301
  2. BYETTA [Suspect]
     Dosage: 10 UG, DAILY (1/D)
     Route: 058
     Dates: start: 20090301, end: 20090720
  3. METFORMAX [Concomitant]
     Dosage: UNK, 3/D
     Route: 048
  4. GLURENORM [Concomitant]
     Dosage: UNK, 2/D
     Route: 048
  5. NOVONORM [Concomitant]
     Dosage: 3 MG, DAILY (1/D)
     Route: 048
     Dates: end: 20090720

REACTIONS (1)
  - HYPOGLYCAEMIC COMA [None]
